FAERS Safety Report 11672865 (Version 1)
Quarter: 2015Q4

REPORT INFORMATION
  Report Type: Spontaneous
  Country: US (occurrence: None)
  Receive Date: 20151027
  Receipt Date: 20151027
  Transmission Date: 20160304
  Serious: Yes (Other)
  Sender: FDA-Public Use
  Company Number: None

PATIENT
  Age: 43 Year
  Sex: Female

DRUGS (3)
  1. UP@UP BRAND DAILY GUMMY MULTIVITAMINS [Concomitant]
  2. SULFAMETHOXAZOLE [Suspect]
     Active Substance: SULFAMETHOXAZOLE
     Indication: STAPHYLOCOCCAL INFECTION
     Dosage: 1 PILL
     Route: 048
     Dates: start: 20151016, end: 20151025
  3. FALMINA BIRTH CONTROL [Concomitant]

REACTIONS (5)
  - Rash [None]
  - Pruritus [None]
  - Jaw disorder [None]
  - Joint swelling [None]
  - Swelling [None]

NARRATIVE: CASE EVENT DATE: 20151025
